FAERS Safety Report 5246429-3 (Version None)
Quarter: 2007Q1

REPORT INFORMATION
  Report Type: 
  Country: None (occurrence: None)
  Receive Date: 20070226
  Receipt Date: 20070220
  Transmission Date: 20070707
  Serious: Yes (Other)
  Sender: FDA-Public Use
  Company Number: HQWYE204120FEB07

PATIENT
  Sex: Female

DRUGS (5)
  1. AMIODARONE HCL [Suspect]
     Indication: VENTRICULAR ARRHYTHMIA
     Dosage: 300 MG IN 20 ML SOLUTION FOR 10 MINUTES
     Route: 042
     Dates: start: 20070207, end: 20070207
  2. AMIODARONE HCL [Suspect]
     Indication: ATRIAL FIBRILLATION
  3. AMIODARONE HCL [Suspect]
     Indication: CARDIOVASCULAR INSUFFICIENCY
  4. AMIODARONE HCL [Suspect]
     Indication: BLOOD PRESSURE DECREASED
  5. HETASTARCH IN SODIUM CHLORIDE [Concomitant]

REACTIONS (2)
  - CONVULSION [None]
  - RESPIRATORY ARREST [None]
